FAERS Safety Report 10250502 (Version 2)
Quarter: 2014Q3

REPORT INFORMATION
  Report Type: Spontaneous
  Country: US (occurrence: US)
  Receive Date: 20140620
  Receipt Date: 20140827
  Transmission Date: 20150326
  Serious: No
  Sender: FDA-Public Use
  Company Number: US-009507513-1406USA010173

PATIENT
  Sex: Female
  Weight: 88.89 kg

DRUGS (2)
  1. MYRBETRIQ [Suspect]
     Active Substance: MIRABEGRON
     Indication: HYPERTONIC BLADDER
     Dosage: UNK, UNKNOWN
  2. OXYTROL FOR WOMEN [Suspect]
     Active Substance: OXYBUTYNIN
     Indication: URINARY INCONTINENCE
     Dosage: 1 DF, QOD
     Route: 062
     Dates: start: 2009

REACTIONS (4)
  - Inappropriate schedule of drug administration [Unknown]
  - Application site erythema [Unknown]
  - Off label use [Unknown]
  - Application site irritation [Unknown]
